FAERS Safety Report 4881862-0 (Version None)
Quarter: 2006Q1

REPORT INFORMATION
  Report Type: 
  Country: None (occurrence: None)
  Receive Date: 20060112
  Receipt Date: 20060112
  Transmission Date: 20060701
  Serious: Yes (Other)
  Sender: FDA-Public Use
  Company Number: None

PATIENT
  Age: 39 Year
  Sex: Male
  Weight: 84.1 kg

DRUGS (7)
  1. HALOPERIDOL LACTATE [Suspect]
     Indication: PSYCHOTIC DISORDER
     Dosage: SEE IMAGE   6 WEEKS,THEN 1 DAY
     Route: 048
  2. HALOPERIDOL LACTATE [Suspect]
     Indication: PSYCHOTIC DISORDER
     Dosage: SEE IMAGE   6 WEEKS,THEN 1 DAY
     Route: 048
  3. ZIPRASIDONE [Concomitant]
  4. BENZTROPINE MESYLATE [Concomitant]
  5. VENLAFAXINE HCL [Concomitant]
  6. VALPROATE SODIUM [Concomitant]
  7. ZOLPIDEM TARTRATE [Concomitant]

REACTIONS (5)
  - BLOOD CREATINE PHOSPHOKINASE INCREASED [None]
  - DELIRIUM [None]
  - DRUG HYPERSENSITIVITY [None]
  - EXTRAPYRAMIDAL DISORDER [None]
  - NEUROLEPTIC MALIGNANT SYNDROME [None]
